FAERS Safety Report 6077496-5 (Version None)
Quarter: 2009Q1

REPORT INFORMATION
  Report Type: 
  Country: None (occurrence: None)
  Receive Date: 20090213
  Receipt Date: 20090203
  Transmission Date: 20090719
  Serious: Yes (Hospitalization)
  Sender: FDA-Public Use
  Company Number: DE-WYE-H07001108

PATIENT
  Sex: Female
  Weight: 51 kg

DRUGS (3)
  1. PANTOZOL [Suspect]
     Indication: HELICOBACTER INFECTION
     Route: 048
     Dates: start: 20081111, end: 20081118
  2. CLARITHROMYCIN [Suspect]
     Indication: HELICOBACTER INFECTION
     Route: 048
     Dates: start: 20081111, end: 20081118
  3. AMOXICILLIN [Suspect]
     Indication: HELICOBACTER INFECTION
     Route: 048
     Dates: start: 20081111, end: 20081118

REACTIONS (1)
  - CLOSTRIDIUM DIFFICILE COLITIS [None]
